FAERS Safety Report 23865491 (Version 2)
Quarter: 2024Q2

REPORT INFORMATION
  Report Type: Spontaneous
  Country: FR (occurrence: FR)
  Receive Date: 20240517
  Receipt Date: 20240601
  Transmission Date: 20240716
  Serious: Yes (Other)
  Sender: FDA-Public Use
  Company Number: FR-TEVA-VS-3187931

PATIENT
  Age: 47 Year
  Sex: Female

DRUGS (6)
  1. TRAMADOL [Suspect]
     Active Substance: TRAMADOL\TRAMADOL HYDROCHLORIDE
     Indication: Pain
     Dosage: UNK
     Route: 048
     Dates: start: 2016, end: 2017
  2. ABILIFY [Suspect]
     Active Substance: ARIPIPRAZOLE
     Indication: Bipolar disorder
     Dosage: 15 MILLIGRAM, ONCE A DAY
     Route: 048
     Dates: start: 2017
  3. LOXAPINE [Suspect]
     Active Substance: LOXAPINE
     Indication: Psychotic disorder
     Dosage: 25 MILLIGRAM, ONCE A DAY
     Route: 048
     Dates: start: 2016
  4. ZYPREXA [Suspect]
     Active Substance: OLANZAPINE
     Indication: Bipolar disorder
     Dosage: 30 MILLIGRAM, ONCE A DAY
     Route: 048
     Dates: start: 2016, end: 2017
  5. ZYPREXA [Suspect]
     Active Substance: OLANZAPINE
     Dosage: 20 MILLIGRAM, ONCE A DAY
     Route: 048
     Dates: start: 2017, end: 2017
  6. ZYPREXA [Suspect]
     Active Substance: OLANZAPINE
     Dosage: 20 MILLIGRAM, ONCE A DAY
     Route: 048
     Dates: start: 2017, end: 2018

REACTIONS (28)
  - Delirium [Unknown]
  - Major depression [Recovered/Resolved]
  - Ageusia [Unknown]
  - Amnesia [Unknown]
  - Anosmia [Unknown]
  - Anxiety [Unknown]
  - Apathy [Unknown]
  - Blepharospasm [Unknown]
  - Depressed mood [Unknown]
  - Depression [Unknown]
  - Decreased appetite [Unknown]
  - Disturbance in attention [Unknown]
  - Dry skin [Unknown]
  - Emotional poverty [Unknown]
  - Feeling abnormal [Unknown]
  - Mutism [Unknown]
  - Hypersensitivity [Unknown]
  - Negative thoughts [Unknown]
  - Overdose [Unknown]
  - Panic attack [Unknown]
  - Salivary hypersecretion [Unknown]
  - Sleep disorder [Unknown]
  - Speech disorder [Unknown]
  - Somnolence [Unknown]
  - Swelling [Unknown]
  - Tremor [Unknown]
  - Vision blurred [Unknown]
  - Weight increased [Unknown]

NARRATIVE: CASE EVENT DATE: 20160101
